FAERS Safety Report 8809717 (Version 1)
Quarter: 2012Q4

REPORT INFORMATION
  Report Type: 
  Country: US (occurrence: US)
  Receive Date: 20120926
  Receipt Date: 20120926
  Transmission Date: 20130627
  Serious: Yes (Death, Hospitalization)
  Sender: FDA-Public Use
  Company Number: US-MPIJNJ-2012-05626

PATIENT
  Age: 41 Year
  Sex: Female

DRUGS (3)
  1. VELCADE [Suspect]
     Indication: MULTIPLE MYELOMA
     Dosage: 2.3 mg, UNK
     Route: 042
     Dates: start: 20111108
  2. CYTOXAN [Suspect]
     Indication: MULTIPLE MYELOMA
  3. DECADRON [Suspect]
     Indication: MULTIPLE MYELOMA

REACTIONS (10)
  - Septic shock [Fatal]
  - Fungaemia [Unknown]
  - Diarrhoea [Unknown]
  - Respiratory failure [Fatal]
  - Enterococcal bacteraemia [Unknown]
  - Renal failure acute [Unknown]
  - Urinary tract infection [None]
  - Escherichia test positive [None]
  - Human rhinovirus test positive [None]
  - Pathological fracture [None]
